FAERS Safety Report 6429830-1 (Version None)
Quarter: 2009Q4

REPORT INFORMATION
  Report Type: 
  Country: None (occurrence: None)
  Receive Date: 20091106
  Receipt Date: 20091102
  Transmission Date: 20100525
  Serious: Yes (Death)
  Sender: FDA-Public Use
  Company Number: US-JNJFOC-20091100782

PATIENT
  Sex: Female
  Weight: 78.02 kg

DRUGS (12)
  1. FENTANYL [Suspect]
     Indication: DRUG USE FOR UNKNOWN INDICATION
     Route: 065
  2. GABAPENTIN [Suspect]
     Indication: DRUG USE FOR UNKNOWN INDICATION
     Route: 065
  3. DIAZEPAM [Suspect]
     Indication: DRUG USE FOR UNKNOWN INDICATION
     Route: 065
  4. HYDROCODONE [Suspect]
     Indication: DRUG USE FOR UNKNOWN INDICATION
     Route: 065
  5. CLONAZEPAM [Suspect]
     Indication: DRUG USE FOR UNKNOWN INDICATION
     Route: 065
  6. NORDIAZEPAM [Concomitant]
     Indication: DRUG USE FOR UNKNOWN INDICATION
     Route: 065
  7. OXAZEPAM [Concomitant]
     Indication: DRUG USE FOR UNKNOWN INDICATION
     Route: 065
  8. CAFFEINE [Concomitant]
     Route: 065
  9. BENZODIAZEPINE NOS [Concomitant]
     Route: 065
  10. NICOTINE [Concomitant]
     Route: 065
  11. TRAZADOL [Concomitant]
     Route: 065
  12. ALCOHOL [Concomitant]
     Route: 065

REACTIONS (2)
  - DRUG TOXICITY [None]
  - SUBSTANCE ABUSE [None]
